FAERS Safety Report 17983332 (Version 1)
Quarter: 2020Q3

REPORT INFORMATION
  Report Type: Spontaneous
  Country: US (occurrence: US)
  Receive Date: 20200702
  Receipt Date: 20200702
  Transmission Date: 20201103
  Serious: No
  Sender: FDA-Public Use
  Company Number: None

PATIENT
  Age: 74 Year
  Sex: Female

DRUGS (17)
  1. PREDNISONE. [Concomitant]
     Active Substance: PREDNISONE
  2. COMBIVENT [Concomitant]
     Active Substance: ALBUTEROL SULFATE\IPRATROPIUM BROMIDE
  3. OXYCODONE [Concomitant]
     Active Substance: OXYCODONE
  4. TRAMADOL HCL [Concomitant]
     Active Substance: TRAMADOL HYDROCHLORIDE
  5. IBRANCE [Suspect]
     Active Substance: PALBOCICLIB
     Indication: BREAST CANCER FEMALE
     Dosage: PO 3WK ON ? 1 WK OFF
     Route: 048
  6. AMLODIPINE [Concomitant]
     Active Substance: AMLODIPINE BESYLATE
  7. CEPHALEXIN. [Concomitant]
     Active Substance: CEPHALEXIN
  8. HYDROXYZ PAM [Concomitant]
     Active Substance: HYDROXYZINE PAMOATE
  9. MULTIVITAMIN WOMENS [Concomitant]
  10. TRIAMCINOLON CRE [Concomitant]
  11. ALBUTEROL AER [Concomitant]
  12. CARVEDILOL. [Concomitant]
     Active Substance: CARVEDILOL
  13. ONDANSETRON [Concomitant]
     Active Substance: ONDANSETRON
  14. VITAMIN D [Concomitant]
     Active Substance: VITAMIN D NOS
  15. CYCLOBENZAPR [Concomitant]
     Active Substance: CYCLOBENZAPRINE
  16. GAVILYTE G [Concomitant]
     Active Substance: POLYETHYLENE GLYCOL 3350\POTASSIUM CHLORIDE\SODIUM BICARBONATE\SODIUM CHLORIDE\SODIUM SULFATE ANHYDROUS
  17. FASLODEX [Concomitant]
     Active Substance: FULVESTRANT

REACTIONS (2)
  - Hepatic cancer metastatic [None]
  - Therapy interrupted [None]

NARRATIVE: CASE EVENT DATE: 20200617
